FAERS Safety Report 8256877-5 (Version None)
Quarter: 2012Q1

REPORT INFORMATION
  Report Type: 
  Country: None (occurrence: None)
  Receive Date: 20120330
  Receipt Date: 20120317
  Transmission Date: 20120608
  Serious: Yes (Other)
  Sender: FDA-Public Use
  Company Number: 2011ES0252

PATIENT
  Age: 1 Year
  Sex: Female

DRUGS (4)
  1. PREDNISONE TAB [Concomitant]
  2. ANAKINRA (ANAKINRA) (100 MILLIGRAM/MILLILITERS) [Suspect]
     Indication: JUVENILE ARTHRITIS
     Dosage: (1 MG/KG)
     Dates: start: 20110801, end: 20110815
  3. OMEPRAZOL (OMEPRAZOL) [Concomitant]
  4. GLUTAFERRO (FERROUS GLUTAMATE) [Concomitant]

REACTIONS (1)
  - TRANSAMINASES INCREASED [None]
